FAERS Safety Report 20579844 (Version 1)
Quarter: 2022Q1

REPORT INFORMATION
  Report Type: Spontaneous
  Country: FR (occurrence: FR)
  Receive Date: 20220310
  Receipt Date: 20220310
  Transmission Date: 20220424
  Serious: Yes (Death)
  Sender: FDA-Public Use
  Company Number: None

PATIENT
  Age: 53 Year
  Sex: Male

DRUGS (2)
  1. GABAPENTIN [Suspect]
     Active Substance: GABAPENTIN
     Route: 065
     Dates: end: 202104
  2. PREGABALIN [Suspect]
     Active Substance: PREGABALIN
     Route: 065
     Dates: end: 202104

REACTIONS (2)
  - Drug abuse [Fatal]
  - Depressed level of consciousness [Fatal]
